FAERS Safety Report 4535173-3 (Version None)
Quarter: 2004Q4

REPORT INFORMATION
  Report Type: 
  Country: None (occurrence: None)
  Receive Date: 20041222
  Receipt Date: 20040730
  Transmission Date: 20050328
  Serious: No
  Sender: FDA-Public Use
  Company Number: US-BRISTOL-MYERS SQUIBB COMPANY-12657490

PATIENT
  Age: 47 Year
  Sex: Male
  Weight: 116 kg

DRUGS (9)
  1. DOVONEX [Suspect]
     Indication: PSORIASIS
     Route: 061
     Dates: start: 20040721
  2. ATENOLOL [Concomitant]
  3. HYDROCHLOROTHIAZIDE [Concomitant]
  4. LISINOPRIL [Concomitant]
  5. NIFEDIPINE [Concomitant]
  6. PLAVIX [Concomitant]
  7. ASPIRIN [Concomitant]
  8. MULTI-VITAMIN [Concomitant]
  9. VITAMIN B COMPLEX CAP [Concomitant]

REACTIONS (1)
  - SKIN ULCER [None]
